FAERS Safety Report 12725685 (Version 1)
Quarter: 2016Q3

REPORT INFORMATION
  Report Type: Spontaneous
  Country: US (occurrence: US)
  Receive Date: 20160908
  Receipt Date: 20160908
  Transmission Date: 20161109
  Serious: No
  Sender: FDA-Public Use
  Company Number: US-TEVA-684984ACC

PATIENT
  Sex: Female

DRUGS (1)
  1. PARAGARD T 380A [Suspect]
     Active Substance: COPPER
     Dates: start: 200805

REACTIONS (4)
  - Device breakage [Not Recovered/Not Resolved]
  - Menorrhagia [Unknown]
  - Menstruation irregular [Unknown]
  - Complication associated with device [Not Recovered/Not Resolved]
